FAERS Safety Report 17920971 (Version 1)
Quarter: 2020Q2

REPORT INFORMATION
  Report Type: Spontaneous
  Country: IL (occurrence: IL)
  Receive Date: 20200622
  Receipt Date: 20200622
  Transmission Date: 20200714
  Serious: Yes (Other)
  Sender: FDA-Public Use
  Company Number: IL-ASTRAZENECA-2020SE76636

PATIENT
  Age: 25729 Day
  Sex: Male

DRUGS (3)
  1. FORXIGA [Suspect]
     Active Substance: DAPAGLIFLOZIN
     Indication: TYPE 2 DIABETES MELLITUS
     Dosage: 10.0MG UNKNOWN
     Route: 048
     Dates: start: 20200401, end: 20200501
  2. GLUCOPHAGE [Concomitant]
     Active Substance: METFORMIN HYDROCHLORIDE
     Indication: TYPE 2 DIABETES MELLITUS
  3. TRULICITY [Concomitant]
     Active Substance: DULAGLUTIDE
     Indication: TYPE 2 DIABETES MELLITUS

REACTIONS (2)
  - Urinary incontinence [Recovered/Resolved]
  - Blood creatine increased [Unknown]

NARRATIVE: CASE EVENT DATE: 20200611
